FAERS Safety Report 7709263-8 (Version None)
Quarter: 2011Q3

REPORT INFORMATION
  Report Type: 
  Country: None (occurrence: None)
  Receive Date: 20110825
  Receipt Date: 20110822
  Transmission Date: 20111222
  Serious: Yes (Death, Other)
  Sender: FDA-Public Use
  Company Number: PHHY2011IT75294

PATIENT
  Age: 57 Year
  Sex: Male

DRUGS (5)
  1. EVEROLIMUS [Suspect]
     Indication: LIVER TRANSPLANT
  2. SORAFENIB [Suspect]
     Dosage: 400 MG
  3. SOMATOSTATIN [Concomitant]
  4. PROTON PUMP INHIBITORS [Concomitant]
  5. TERLIPRESSIN [Concomitant]

REACTIONS (4)
  - MELAENA [None]
  - HEPATIC NEOPLASM MALIGNANT RECURRENT [None]
  - GASTRIC HAEMORRHAGE [None]
  - GASTROINTESTINAL HAEMORRHAGE [None]
